FAERS Safety Report 13935961 (Version 1)
Quarter: 2017Q3

REPORT INFORMATION
  Report Type: Spontaneous
  Country: US (occurrence: US)
  Receive Date: 20170904
  Receipt Date: 20170904
  Transmission Date: 20171127
  Serious: Yes (Disabling, Other)
  Sender: FDA-Public Use
  Company Number: None

PATIENT
  Age: 52 Year
  Sex: Female
  Weight: 138.6 kg

DRUGS (8)
  1. BIOTIN [Concomitant]
     Active Substance: BIOTIN
  2. BIOSIL [Concomitant]
  3. CIPROFLOXACIN. [Suspect]
     Active Substance: CIPROFLOXACIN
     Indication: SINUSITIS
     Dosage: ?          QUANTITY:20 TABLET(S);?EVERY 12 HOURS ORAL
     Route: 048
     Dates: start: 20170901, end: 20170902
  4. VITAMIN B12 COMPLEX [Concomitant]
  5. AMOXICILLIN. [Concomitant]
     Active Substance: AMOXICILLIN
  6. CHONDROITIN [Concomitant]
     Active Substance: CHONDROITIN
  7. FISH OIL [Concomitant]
     Active Substance: FISH OIL
  8. CALCIUM W/D3 [Concomitant]

REACTIONS (8)
  - Myalgia [None]
  - Hypersensitivity [None]
  - Paraesthesia [None]
  - Blood pressure increased [None]
  - Fatigue [None]
  - Hypoaesthesia [None]
  - Arthralgia [None]
  - Heart rate increased [None]

NARRATIVE: CASE EVENT DATE: 20170902
